FAERS Safety Report 11863955 (Version 1)
Quarter: 2015Q4

REPORT INFORMATION
  Report Type: Spontaneous
  Country: IL (occurrence: IL)
  Receive Date: 20151223
  Receipt Date: 20151223
  Transmission Date: 20160305
  Serious: Yes (Other)
  Sender: FDA-Public Use
  Company Number: IL-GLAXOSMITHKLINE-IL2015GSK180237

PATIENT
  Age: 25 Year
  Sex: Female

DRUGS (4)
  1. BELIMUMAB [Suspect]
     Active Substance: BELIMUMAB
     Indication: SYSTEMIC LUPUS ERYTHEMATOSUS
  2. AZATHIOPRINE. [Concomitant]
     Active Substance: AZATHIOPRINE
     Indication: SYSTEMIC LUPUS ERYTHEMATOSUS
  3. HYDROXYCHLOROQUINE [Concomitant]
     Active Substance: HYDROXYCHLOROQUINE
     Indication: SYSTEMIC LUPUS ERYTHEMATOSUS
  4. METHOTREXATE [Concomitant]
     Active Substance: METHOTREXATE
     Indication: SYSTEMIC LUPUS ERYTHEMATOSUS

REACTIONS (12)
  - Pyrexia [Unknown]
  - Lupus nephritis [Unknown]
  - White matter lesion [Unknown]
  - Rash [Unknown]
  - Headache [Unknown]
  - Nervous system disorder [Unknown]
  - Leukopenia [Unknown]
  - Urinary sediment present [Unknown]
  - Drug hypersensitivity [Unknown]
  - CSF protein increased [Unknown]
  - Thrombocytopenia [Unknown]
  - Urticaria [Unknown]
